FAERS Safety Report 5516810-3 (Version None)
Quarter: 2007Q4

REPORT INFORMATION
  Report Type: 
  Country: None (occurrence: None)
  Receive Date: 20071109
  Receipt Date: 20071025
  Transmission Date: 20080405
  Serious: Yes (Life-Threatening, Hospitalization)
  Sender: FDA-Public Use
  Company Number: 2007S1011079

PATIENT
  Age: 69 Year
  Sex: Male
  Weight: 88 kg

DRUGS (8)
  1. METFORMIN HCL [Suspect]
     Indication: DIABETES MELLITUS
     Dosage: 1 DF; DAILY; ORAL; 1 DF; TWICE A DAY; ORAL; 1 DR; 3 TIMES A DAY; ORAL; 2000 MG; ORAL
     Route: 048
     Dates: start: 20070101
  2. METFORMIN HCL [Suspect]
     Indication: DIABETES MELLITUS
     Dosage: 1 DF; DAILY; ORAL; 1 DF; TWICE A DAY; ORAL; 1 DR; 3 TIMES A DAY; ORAL; 2000 MG; ORAL
     Route: 048
     Dates: start: 20070301
  3. METFORMIN HCL [Suspect]
     Indication: DIABETES MELLITUS
     Dosage: 1 DF; DAILY; ORAL; 1 DF; TWICE A DAY; ORAL; 1 DR; 3 TIMES A DAY; ORAL; 2000 MG; ORAL
     Route: 048
     Dates: start: 20070917
  4. METFORMIN HCL [Suspect]
     Indication: DIABETES MELLITUS
     Dosage: 1 DF; DAILY; ORAL; 1 DF; TWICE A DAY; ORAL; 1 DR; 3 TIMES A DAY; ORAL; 2000 MG; ORAL
     Route: 048
     Dates: start: 20070927
  5. ASPIRIN [Concomitant]
  6. ATORVASTATIN CALCIUM [Concomitant]
  7. BISOPROLOL FUMARATE [Concomitant]
  8. GTN-S [Concomitant]

REACTIONS (8)
  - ABDOMINAL PAIN [None]
  - AMNESIA [None]
  - ANOREXIA [None]
  - CARDIAC FLUTTER [None]
  - CHEST DISCOMFORT [None]
  - DYSPNOEA [None]
  - MALAISE [None]
  - PALLOR [None]
